FAERS Safety Report 20182892 (Version 1)
Quarter: 2021Q4

REPORT INFORMATION
  Report Type: Spontaneous
  Country: US (occurrence: None)
  Receive Date: 20211214
  Receipt Date: 20211214
  Transmission Date: 20220303
  Serious: Yes (Hospitalization)
  Sender: FDA-Public Use
  Company Number: 2021A856982

PATIENT
  Age: 21515 Day
  Sex: Female
  Weight: 79.4 kg

DRUGS (1)
  1. SYMBICORT [Suspect]
     Active Substance: BUDESONIDE\FORMOTEROL FUMARATE DIHYDRATE
     Indication: Wheezing
     Dosage: 160/4.5 MCG, ONE PUFF TWICE DAILY
     Route: 055
     Dates: start: 20211130, end: 20211130

REACTIONS (18)
  - Bronchitis viral [Unknown]
  - Parainfluenzae virus infection [Unknown]
  - Respiratory syncytial virus infection [Unknown]
  - Sinus congestion [Unknown]
  - Headache [Unknown]
  - Periorbital swelling [Unknown]
  - Throat irritation [Unknown]
  - Mucosal inflammation [Unknown]
  - Nasal congestion [Unknown]
  - Pain [Unknown]
  - Chills [Unknown]
  - Body temperature increased [Unknown]
  - Abdominal pain upper [Unknown]
  - Influenza like illness [Unknown]
  - Swelling face [Unknown]
  - Oropharyngeal pain [Unknown]
  - Back pain [Unknown]
  - Off label use [Unknown]

NARRATIVE: CASE EVENT DATE: 20211130
